FAERS Safety Report 25865208 (Version 1)
Quarter: 2025Q3

REPORT INFORMATION
  Report Type: Report from Study
  Country: US (occurrence: US)
  Receive Date: 20250930
  Receipt Date: 20250930
  Transmission Date: 20251020
  Serious: Yes (Other)
  Sender: ABBVIE
  Company Number: US-ABBVIE-6477538

PATIENT
  Age: 89 Year
  Sex: Female

DRUGS (1)
  1. SKYRIZI [Suspect]
     Active Substance: RISANKIZUMAB-RZAA
     Indication: Crohn^s disease
     Route: 058
     Dates: start: 20230203

REACTIONS (5)
  - Tortuous oesophagus [Recovering/Resolving]
  - Cough [Not Recovered/Not Resolved]
  - Weight decreased [Unknown]
  - Ulcer [Unknown]
  - Feeding disorder [Unknown]

NARRATIVE: CASE EVENT DATE: 20250701
